FAERS Safety Report 8607043 (Version 3)
Quarter: 2014Q1

REPORT INFORMATION
  Report Type: Spontaneous
  Country: US (occurrence: US)
  Receive Date: 20120611
  Receipt Date: 20140131
  Transmission Date: 20141002
  Serious: Yes (Hospitalization, Disabling)
  Sender: FDA-Public Use
  Company Number: US-ASTRAZENECA-2012SE35911

PATIENT
  Age: 47 Year
  Sex: Female

DRUGS (17)
  1. NEXIUM [Suspect]
     Indication: GASTRIC ULCER
     Dosage: TWICE A DAY
     Route: 048
  2. NEXIUM [Suspect]
     Indication: GASTRIC ULCER
     Route: 048
     Dates: start: 20060227
  3. ZANTAC [Concomitant]
  4. TUMS [Concomitant]
  5. ALKA-SELTZER [Concomitant]
  6. MILK OF MAGNESIA [Concomitant]
  7. GAVISCON [Concomitant]
  8. PEPTO-BISMOL [Concomitant]
  9. ROLAIDS [Concomitant]
  10. MYLANTA [Concomitant]
  11. FLUOXETINE [Concomitant]
     Route: 048
     Dates: start: 20040213
  12. TRAZODONE [Concomitant]
     Route: 048
     Dates: start: 20041203
  13. TRAMADOL [Concomitant]
     Route: 048
     Dates: start: 20050103
  14. CLONIDINE [Concomitant]
     Route: 048
     Dates: start: 20041203
  15. ACTONEL [Concomitant]
     Route: 048
  16. CYCLOBENZAPRINE [Concomitant]
     Route: 048
     Dates: start: 20060404
  17. LORTAB [Concomitant]

REACTIONS (17)
  - Wrist fracture [Unknown]
  - Back disorder [Unknown]
  - Osteoarthritis [Unknown]
  - Arthropathy [Unknown]
  - Joint injury [Unknown]
  - Jaw fracture [Unknown]
  - Osteoporosis [Unknown]
  - Bone density decreased [Unknown]
  - Arthritis [Unknown]
  - Calcium deficiency [Unknown]
  - Osteopenia [Unknown]
  - Vitamin D deficiency [Unknown]
  - Facial bones fracture [Unknown]
  - Upper limb fracture [Unknown]
  - Myelopathy [Unknown]
  - Cervical spinal stenosis [Unknown]
  - Depression [Unknown]
